FAERS Safety Report 4511323-X (Version None)
Quarter: 2004Q4

REPORT INFORMATION
  Report Type: 
  Country: None (occurrence: None)
  Receive Date: 20041129
  Receipt Date: 20041115
  Transmission Date: 20050328
  Serious: Yes (Hospitalization)
  Sender: FDA-Public Use
  Company Number: FR-JNJFOC-20041104117

PATIENT
  Age: 73 Year
  Sex: Male

DRUGS (10)
  1. PROPULSID [Suspect]
     Route: 049
     Dates: start: 20030618, end: 20040708
  2. PROPULSID [Suspect]
     Route: 049
     Dates: start: 20030618, end: 20040708
  3. KARDEGIC [Concomitant]
  4. RIVOTRIL [Concomitant]
  5. DEROXAT [Concomitant]
  6. DIFF-K [Concomitant]
  7. XANAX [Concomitant]
  8. NEURONTIN [Concomitant]
  9. MOPRAL [Concomitant]
  10. FORLAX [Concomitant]

REACTIONS (2)
  - DRUG INEFFECTIVE [None]
  - HOSPITALISATION [None]
